FAERS Safety Report 16173159 (Version 2)
Quarter: 2019Q2

REPORT INFORMATION
  Report Type: Spontaneous
  Country: FR (occurrence: FR)
  Receive Date: 20190409
  Receipt Date: 20190506
  Transmission Date: 20190711
  Serious: Yes (Hospitalization, Other)
  Sender: FDA-Public Use
  Company Number: FR-AUROBINDO-AUR-APL-2019-018003

PATIENT

DRUGS (7)
  1. IBRANCE [Suspect]
     Active Substance: PALBOCICLIB
     Indication: PRODUCT USED FOR UNKNOWN INDICATION
     Dosage: 125 MG, UNK
     Route: 048
     Dates: start: 20180306
  2. TETRALYSAL [Concomitant]
     Indication: ROSACEA
     Dosage: 300 MG, UNK
     Route: 065
     Dates: start: 20180515, end: 20180814
  3. LETROZOLE. [Suspect]
     Active Substance: LETROZOLE
     Indication: BREAST CANCER
     Dosage: 2.5 MG, UNK
     Route: 048
     Dates: start: 20180306
  4. LETROZOLE. [Suspect]
     Active Substance: LETROZOLE
     Dosage: UNK
     Route: 065
     Dates: start: 20190221
  5. LETROZOLE. [Suspect]
     Active Substance: LETROZOLE
     Indication: BREAST CANCER
     Dosage: 2.5 MILLIGRAM, ONCE A DAY
     Route: 048
     Dates: start: 20180306
  6. AUGMENTIN [Concomitant]
     Active Substance: AMOXICILLIN\CLAVULANATE POTASSIUM
     Indication: EYE INFECTION
     Dosage: UNK
     Route: 065
     Dates: start: 20180807, end: 20180812
  7. IBRANCE [Suspect]
     Active Substance: PALBOCICLIB
     Dosage: UNK
     Route: 065
     Dates: start: 20190221

REACTIONS (18)
  - Pneumonia [Unknown]
  - Cough [Unknown]
  - Influenza [Recovering/Resolving]
  - Breast cancer recurrent [Unknown]
  - Pleural effusion [Unknown]
  - Candida infection [Unknown]
  - Decreased appetite [Unknown]
  - Diarrhoea [Unknown]
  - Pain [Unknown]
  - Pyrexia [Unknown]
  - Bronchitis [Recovered/Resolved]
  - Rhonchi [Unknown]
  - General physical health deterioration [Unknown]
  - Dyspnoea [Unknown]
  - Vulvovaginal mycotic infection [Unknown]
  - Asthenia [Unknown]
  - Interstitial lung disease [Unknown]
  - Nausea [Unknown]

NARRATIVE: CASE EVENT DATE: 201902
